FAERS Safety Report 4760062-9 (Version None)
Quarter: 2005Q3

REPORT INFORMATION
  Report Type: 
  Country: None (occurrence: None)
  Receive Date: 20050902
  Receipt Date: 20050829
  Transmission Date: 20060218
  Serious: Yes (Other)
  Sender: FDA-Public Use
  Company Number: PHRM2005FR02344

PATIENT
  Age: 24 Year
  Sex: Female

DRUGS (2)
  1. LEPONEX [Suspect]
     Indication: SCHIZOPHRENIA
     Route: 048
     Dates: start: 20020101
  2. ZOLOFT [Concomitant]
     Dosage: 2 DF DAILY
     Route: 048

REACTIONS (6)
  - FATIGUE [None]
  - FIBROADENOMA OF BREAST [None]
  - GAMMA-GLUTAMYLTRANSFERASE INCREASED [None]
  - MONOCYTOSIS [None]
  - NAUSEA [None]
  - TRANSAMINASES INCREASED [None]
